FAERS Safety Report 4930986-8 (Version None)
Quarter: 2006Q1

REPORT INFORMATION
  Report Type: 
  Country: None (occurrence: None)
  Receive Date: 20060227
  Receipt Date: 20060214
  Transmission Date: 20060701
  Serious: Yes (Hospitalization)
  Sender: FDA-Public Use
  Company Number: 2006PV008636

PATIENT
  Age: 70 Year
  Sex: Female
  Weight: 113.3993 kg

DRUGS (11)
  1. BYETTA [Suspect]
     Indication: DIABETES MELLITUS NON-INSULIN-DEPENDENT
     Dosage: 5 MCG;BID;SC
     Route: 058
     Dates: start: 20060105, end: 20060106
  2. BYETTA [Suspect]
     Indication: DIABETES MELLITUS NON-INSULIN-DEPENDENT
     Dosage: 5 MCG;BID;SC
     Route: 058
     Dates: start: 20060203
  3. LANTUS [Concomitant]
  4. TYLENOL [Concomitant]
  5. ULTRACET [Concomitant]
  6. IMDUR [Concomitant]
  7. ASPIRIN [Concomitant]
  8. COZAAR [Concomitant]
  9. FUROSEMIDE [Concomitant]
  10. LIPITOR [Concomitant]
  11. ATENOLOL [Concomitant]

REACTIONS (8)
  - ARTHRALGIA [None]
  - BURNING SENSATION [None]
  - CARDIAC DISORDER [None]
  - CHEST DISCOMFORT [None]
  - CORONARY ARTERY OCCLUSION [None]
  - MUSCLE FATIGUE [None]
  - MYALGIA [None]
  - WEIGHT DECREASED [None]
